FAERS Safety Report 13704782 (Version 1)
Quarter: 2017Q2

REPORT INFORMATION
  Report Type: Spontaneous
  Country: US (occurrence: US)
  Receive Date: 20170630
  Receipt Date: 20170630
  Transmission Date: 20170830
  Serious: Yes (Other)
  Sender: FDA-Public Use
  Company Number: US-JNJFOC-20170618368

PATIENT
  Age: 74 Year
  Sex: Male
  Weight: 62.6 kg

DRUGS (1)
  1. TYLENOL PM EXTRA STRENGTH [Suspect]
     Active Substance: ACETAMINOPHEN\DIPHENHYDRAMINE HYDROCHLORIDE
     Indication: SLEEP DISORDER THERAPY
     Dosage: 1-2 TABLETS AT FIRST AND THEN 6-8 TABLETS AT BED TIME
     Route: 048

REACTIONS (2)
  - Overdose [Unknown]
  - Drug use disorder [Not Recovered/Not Resolved]
